FAERS Safety Report 17801989 (Version 8)
Quarter: 2024Q4

REPORT INFORMATION
  Report Type: Report from Study
  Country: JP (occurrence: JP)
  Receive Date: 20200519
  Receipt Date: 20241202
  Transmission Date: 20250114
  Serious: Yes (Other)
  Sender: ABBVIE
  Company Number: JP-ABBVIE-19S-087-2701045-00

PATIENT
  Age: 56 Year
  Sex: Female
  Weight: 40 kg

DRUGS (7)
  1. CARBIDOPA\LEVODOPA [Suspect]
     Active Substance: CARBIDOPA\LEVODOPA
     Indication: Parkinson^s disease
     Dosage: MD: 8.8 ML, CD: 2.9 ML/HR ? 16 HRS, ED: 2 ML/UNIT ? 3
     Route: 050
     Dates: start: 20180615
  2. CARBIDOPA\LEVODOPA [Suspect]
     Active Substance: CARBIDOPA\LEVODOPA
     Dosage: MD: 0 ML, CD: 2.2 ML/HR ? 16 HRS, ED: 1.0 ML/UNIT ? 1
     Route: 050
     Dates: start: 20180425, end: 20180427
  3. CARBIDOPA\LEVODOPA [Suspect]
     Active Substance: CARBIDOPA\LEVODOPA
     Dosage: MD: 8.8 ML, CD: 2.9 ML/HR ? 16 HRS, ED: 2 ML/UNIT ? 1
     Route: 050
     Dates: start: 20180509, end: 20180608
  4. CARBIDOPA, LEVODOPA AND ENTACAPONE [Concomitant]
     Active Substance: CARBIDOPA\ENTACAPONE\LEVODOPA
     Indication: Parkinson^s disease
     Dosage: 800 MILLIGRAM
     Route: 048
     Dates: start: 20180427, end: 20180509
  5. CARBIDOPA, LEVODOPA AND ENTACAPONE [Concomitant]
     Active Substance: CARBIDOPA\ENTACAPONE\LEVODOPA
     Indication: Parkinson^s disease
     Route: 048
  6. CARBIDOPA, LEVODOPA AND ENTACAPONE [Concomitant]
     Active Substance: CARBIDOPA\ENTACAPONE\LEVODOPA
     Indication: Parkinson^s disease
     Dosage: 200 MILLIGRAM
     Route: 048
     Dates: end: 20180608
  7. ROTIGOTINE [Concomitant]
     Active Substance: ROTIGOTINE
     Indication: Parkinson^s disease
     Dosage: 18 MILLIGRAM
     Route: 062
     Dates: end: 20180608

REACTIONS (10)
  - Seizure [Unknown]
  - Blood alkaline phosphatase increased [Unknown]
  - Malaise [Unknown]
  - Product administration error [Unknown]
  - Mobility decreased [Unknown]
  - Dyspnoea [Unknown]
  - Abdominal pain [Unknown]
  - Device occlusion [Unknown]
  - Dementia [Unknown]
  - Device kink [Unknown]

NARRATIVE: CASE EVENT DATE: 20190517
